FAERS Safety Report 4929445-8 (Version None)
Quarter: 2006Q1

REPORT INFORMATION
  Report Type: 
  Country: None (occurrence: None)
  Receive Date: 20060301
  Receipt Date: 20060105
  Transmission Date: 20060701
  Serious: Yes (Other)
  Sender: FDA-Public Use
  Company Number: US-AMGEN-US164128

PATIENT
  Sex: Female
  Weight: 76.3 kg

DRUGS (3)
  1. ENBREL [Suspect]
     Indication: RHEUMATOID ARTHRITIS
     Route: 058
     Dates: start: 20050601, end: 20051207
  2. PREDNISONE [Concomitant]
  3. XANAX [Concomitant]

REACTIONS (8)
  - ANXIETY [None]
  - CONDITION AGGRAVATED [None]
  - DEPRESSION [None]
  - LEUKOENCEPHALOPATHY [None]
  - MULTIPLE SCLEROSIS [None]
  - RHEUMATOID ARTHRITIS [None]
  - TOLOSA-HUNT SYNDROME [None]
  - VISUAL DISTURBANCE [None]
